FAERS Safety Report 17765448 (Version 1)
Quarter: 2020Q2

REPORT INFORMATION
  Report Type: Spontaneous
  Country: US (occurrence: US)
  Receive Date: 20200508
  Receipt Date: 20200508
  Transmission Date: 20200714
  Serious: No
  Sender: FDA-Public Use
  Company Number: None

PATIENT
  Age: 33 Year
  Sex: Female
  Weight: 73 kg

DRUGS (1)
  1. VANCOMYCIN [Suspect]
     Active Substance: VANCOMYCIN
     Indication: PROPHYLAXIS
     Dosage: ?          OTHER FREQUENCY:ONCE;?
     Route: 042

REACTIONS (2)
  - Pruritus [None]
  - Erythema [None]

NARRATIVE: CASE EVENT DATE: 20200508
